FAERS Safety Report 8879863 (Version 4)
Quarter: 2014Q1

REPORT INFORMATION
  Report Type: Spontaneous
  Country: US (occurrence: US)
  Receive Date: 20121101
  Receipt Date: 20140124
  Transmission Date: 20141002
  Serious: Yes (Hospitalization)
  Sender: FDA-Public Use
  Company Number: US-TEVA-362490USA

PATIENT
  Age: 32 Year
  Sex: Female
  Weight: 56.75 kg

DRUGS (2)
  1. PARAGARD 380A [Suspect]
     Indication: CONTRACEPTION
     Route: 015
     Dates: start: 20120905, end: 20121005
  2. NUVARING [Concomitant]

REACTIONS (13)
  - Procedural complication [Recovered/Resolved with Sequelae]
  - Embedded device [Recovered/Resolved with Sequelae]
  - Complication of device removal [Recovered/Resolved with Sequelae]
  - Device dislocation [Recovered/Resolved]
  - Painful defaecation [Not Recovered/Not Resolved]
  - Back pain [Recovered/Resolved]
  - Elective procedure [Recovered/Resolved with Sequelae]
  - Incontinence [Recovered/Resolved with Sequelae]
  - Depression [Unknown]
  - Faecal incontinence [Unknown]
  - Pain [Unknown]
  - Dyspepsia [Unknown]
  - Scar [Unknown]
